FAERS Safety Report 6691847-X (Version None)
Quarter: 2010Q2

REPORT INFORMATION
  Report Type: 
  Country: None (occurrence: None)
  Receive Date: 20100422
  Receipt Date: 20100414
  Transmission Date: 20101027
  Serious: Yes (Other)
  Sender: FDA-Public Use
  Company Number: PHHY2010CA24385

PATIENT
  Sex: Female

DRUGS (10)
  1. EXJADE [Suspect]
     Indication: MYELODYSPLASTIC SYNDROME
     Dosage: 875 MG, QD
     Route: 048
     Dates: start: 20090301
  2. COZAAR [Concomitant]
     Dosage: 100 MG
  3. WATER PILLS [Concomitant]
     Dosage: 25 MG, EVERY OTHER DAY
     Route: 048
  4. METOPROLOL TARTRATE [Concomitant]
     Dosage: 25 MG HALF TABLET, BID
     Route: 048
  5. ASPIRIN [Concomitant]
     Dosage: ONE TABLET, OD
     Route: 048
  6. LORAZEPAM [Concomitant]
     Dosage: AS NEEDED, 1 DROP IN EACH EYE DAILY
  7. EPREX [Concomitant]
     Dosage: DAILY
  8. TYLENOL (CAPLET) [Concomitant]
  9. GRAVOL TAB [Concomitant]
     Dosage: AS NEEDED
  10. SENOKOT [Concomitant]
     Dosage: AS NEEDED

REACTIONS (3)
  - ATRIAL FIBRILLATION [None]
  - DIARRHOEA [None]
  - NAUSEA [None]
